FAERS Safety Report 4598707-9 (Version None)
Quarter: 2005Q1

REPORT INFORMATION
  Report Type: 
  Country: None (occurrence: None)
  Receive Date: 20050304
  Receipt Date: 20050225
  Transmission Date: 20050727
  Serious: Yes (Hospitalization)
  Sender: FDA-Public Use
  Company Number: PHHO2005CO03458

PATIENT
  Sex: Female

DRUGS (6)
  1. ZELMAC [Suspect]
     Indication: IRRITABLE BOWEL SYNDROME
     Route: 048
     Dates: start: 20040501
  2. TRILEPTAL [Suspect]
     Indication: NEUROPATHIC PAIN
     Dosage: 300 MG, BID
     Route: 048
     Dates: start: 20040501
  3. TRYPTANOL [Concomitant]
  4. OMEPRAZOLE [Concomitant]
  5. AMOBARBITAL SODIUM [Concomitant]
  6. SECOBARBITAL SODIUM [Concomitant]

REACTIONS (1)
  - BILIARY TRACT OPERATION [None]
